FAERS Safety Report 15311077 (Version 1)
Quarter: 2018Q3

REPORT INFORMATION
  Report Type: Report from Study
  Country: BR (occurrence: BR)
  Receive Date: 20180823
  Receipt Date: 20180823
  Transmission Date: 20181010
  Serious: Yes (Other)
  Sender: FDA-Public Use
  Company Number: PHHY2018BR079490

PATIENT
  Sex: Female
  Weight: 47 kg

DRUGS (1)
  1. EXELON PATCH [Suspect]
     Active Substance: RIVASTIGMINE
     Indication: DEMENTIA ALZHEIMER^S TYPE
     Dosage: UNK UNK, QD (IT HAD BEEN MORE THAN ONE MONTH)
     Route: 062

REACTIONS (4)
  - Condition aggravated [Recovering/Resolving]
  - Logorrhoea [Unknown]
  - Abnormal behaviour [Not Recovered/Not Resolved]
  - Dementia Alzheimer^s type [Recovering/Resolving]
